FAERS Safety Report 16086715 (Version 1)
Quarter: 2019Q1

REPORT INFORMATION
  Report Type: Report from Study
  Country: US (occurrence: US)
  Receive Date: 20190318
  Receipt Date: 20190318
  Transmission Date: 20190418
  Serious: Yes (Other)
  Sender: FDA-Public Use
  Company Number: PHEH2019US010195

PATIENT
  Sex: Male

DRUGS (1)
  1. ENTRESTO [Suspect]
     Active Substance: SACUBITRIL\VALSARTAN
     Indication: PRODUCT USED FOR UNKNOWN INDICATION
     Dosage: UNK
     Route: 048

REACTIONS (9)
  - Tremor [Unknown]
  - Eye disorder [Unknown]
  - Hypotension [Unknown]
  - Glaucoma [Unknown]
  - Peripheral swelling [Unknown]
  - Malaise [Unknown]
  - Cerebrovascular accident [Unknown]
  - Abdominal distension [Unknown]
  - Balance disorder [Unknown]
